FAERS Safety Report 10301719 (Version 2)
Quarter: 2014Q3

REPORT INFORMATION
  Report Type: Spontaneous
  Country: US (occurrence: None)
  Receive Date: 20140709
  Receipt Date: 20140714
  Transmission Date: 20150326
  Serious: Yes (Other)
  Sender: FDA-Public Use
  Company Number: UNT-2014-003198

PATIENT
  Age: 65 Year
  Sex: Male
  Weight: 119.2 kg

DRUGS (2)
  1. REVATIO [Concomitant]
     Active Substance: SILDENAFIL CITRATE
  2. TYVASO [Suspect]
     Active Substance: TREPROSTINIL
     Indication: PULMONARY ARTERIAL HYPERTENSION
     Route: 055
     Dates: start: 20140613

REACTIONS (7)
  - Oropharyngeal pain [None]
  - Hypertension [None]
  - Lethargy [None]
  - Heart rate increased [None]
  - Headache [None]
  - Fatigue [None]
  - Sleep disorder [None]

NARRATIVE: CASE EVENT DATE: 201406
